FAERS Safety Report 7722519-8 (Version None)
Quarter: 2011Q3

REPORT INFORMATION
  Report Type: 
  Country: None (occurrence: None)
  Receive Date: 20110831
  Receipt Date: 20110826
  Transmission Date: 20111222
  Serious: Yes (Hospitalization)
  Sender: FDA-Public Use
  Company Number: US-ABBOTT-11P-163-0734341-00

PATIENT
  Sex: Female
  Weight: 63.56 kg

DRUGS (2)
  1. XANAX [Concomitant]
     Indication: ANXIETY
  2. HUMIRA [Suspect]
     Indication: CROHN'S DISEASE
     Dates: start: 20090101

REACTIONS (5)
  - COLONIC STENOSIS [None]
  - ANASTOMOTIC COMPLICATION [None]
  - COLONIC OBSTRUCTION [None]
  - FEMALE GENITAL TRACT FISTULA [None]
  - ABDOMINAL ADHESIONS [None]
